FAERS Safety Report 5897867-7 (Version None)
Quarter: 2008Q3

REPORT INFORMATION
  Report Type: 
  Country: None (occurrence: None)
  Receive Date: 20080923
  Receipt Date: 20080912
  Transmission Date: 20090109
  Serious: Yes (Other)
  Sender: FDA-Public Use
  Company Number: 100#02#2008-04637

PATIENT
  Sex: Female

DRUGS (1)
  1. ALENDRONIC ACID            (ALENDRONIC ACID) [Suspect]
     Indication: DRUG USE FOR UNKNOWN INDICATION
     Dosage: 70 MG ORAL
     Route: 048

REACTIONS (5)
  - CONFUSIONAL STATE [None]
  - DISTURBANCE IN ATTENTION [None]
  - HOT FLUSH [None]
  - HYPERHIDROSIS [None]
  - PHARYNGEAL DISORDER [None]
